FAERS Safety Report 26015588 (Version 2)
Quarter: 2025Q4

REPORT INFORMATION
  Report Type: Report from Study
  Country: JP (occurrence: JP)
  Receive Date: 20251109
  Receipt Date: 20251117
  Transmission Date: 20260118
  Serious: Yes (Death, Life-Threatening, Hospitalization, Other)
  Sender: TAKEDA
  Company Number: JP-TAKEDA-2025TJP011320

PATIENT
  Age: 33 Year
  Sex: Male
  Weight: 76.2 kg

DRUGS (9)
  1. MARIBAVIR [Suspect]
     Active Substance: MARIBAVIR
     Indication: Cytomegalovirus infection
     Dosage: 800 MILLIGRAM
     Dates: start: 20250626, end: 20250709
  2. MARIBAVIR [Suspect]
     Active Substance: MARIBAVIR
     Dosage: 400 MILLIGRAM
     Dates: start: 20250909, end: 20250915
  3. MARIBAVIR [Suspect]
     Active Substance: MARIBAVIR
     Dosage: 800 MILLIGRAM
     Dates: start: 20250916, end: 20251020
  4. FOSCARNET SODIUM [Concomitant]
     Active Substance: FOSCARNET SODIUM
     Indication: Cytomegalovirus infection
     Dosage: UNK
     Dates: start: 20250701, end: 20250731
  5. VALGANCICLOVIR HYDROCHLORIDE [Concomitant]
     Active Substance: VALGANCICLOVIR HYDROCHLORIDE
     Indication: Cytomegalovirus infection
     Dosage: UNK
     Dates: start: 20250801, end: 20250908
  6. TACROLIMUS [Concomitant]
     Active Substance: TACROLIMUS
     Dosage: UNK
     Dates: start: 20250701, end: 20251020
  7. MYCOPHENOLATE MOFETIL [Concomitant]
     Active Substance: MYCOPHENOLATE MOFETIL
     Dosage: UNK
     Dates: start: 20250701, end: 20250819
  8. CYCLOPHOSPHAMIDE [Concomitant]
     Active Substance: CYCLOPHOSPHAMIDE
     Dosage: UNK
     Dates: start: 20250629, end: 20250630
  9. ARRANON G [Concomitant]
     Dosage: UNK

REACTIONS (1)
  - Acute lymphocytic leukaemia recurrent [Fatal]

NARRATIVE: CASE EVENT DATE: 20251007
